FAERS Safety Report 4800188-4 (Version None)
Quarter: 2005Q4

REPORT INFORMATION
  Report Type: 
  Country: None (occurrence: None)
  Receive Date: 20051013
  Receipt Date: 20051013
  Transmission Date: 20060501
  Serious: Yes (Other)
  Sender: FDA-Public Use
  Company Number: None

PATIENT
  Age: 30 Year
  Sex: Female
  Weight: 94.3482 kg

DRUGS (1)
  1. SYNTHROID [Suspect]
     Indication: HYPOTHYROIDISM
     Dosage: 1 DAILY
     Dates: start: 19840101, end: 19990101

REACTIONS (2)
  - TACHYCARDIA [None]
  - THYROID FUNCTION TEST ABNORMAL [None]
